FAERS Safety Report 9132377 (Version 2)
Quarter: 2013Q3

REPORT INFORMATION
  Report Type: Spontaneous
  Country: US (occurrence: US)
  Receive Date: 20130301
  Receipt Date: 20130829
  Transmission Date: 20140515
  Serious: No
  Sender: FDA-Public Use
  Company Number: US-TEVA-388411USA

PATIENT
  Age: 61 Year
  Sex: Female
  Weight: 68.1 kg

DRUGS (1)
  1. NUVIGIL [Suspect]
     Indication: CIRCADIAN RHYTHM SLEEP DISORDER
     Route: 048
     Dates: start: 20130222, end: 20130222

REACTIONS (1)
  - Mouth ulceration [Not Recovered/Not Resolved]
